FAERS Safety Report 10296468 (Version 2)
Quarter: 2014Q3

REPORT INFORMATION
  Report Type: Spontaneous
  Country: GB (occurrence: GB)
  Receive Date: 20140710
  Receipt Date: 20140710
  Transmission Date: 20150326
  Serious: Yes (Hospitalization, Other)
  Sender: FDA-Public Use
  Company Number: ALCN2004GB000960

PATIENT
  Age: 80 Year
  Sex: Female

DRUGS (1)
  1. TIMOLOL [Suspect]
     Active Substance: TIMOLOL
     Dosage: UNK
     Route: 047
     Dates: start: 1992

REACTIONS (2)
  - Myocardial infarction [Recovered/Resolved]
  - Cardiac failure [Recovered/Resolved]
